FAERS Safety Report 7843596-X (Version None)
Quarter: 2011Q4

REPORT INFORMATION
  Report Type: 
  Country: None (occurrence: None)
  Receive Date: 20111017
  Receipt Date: 20111005
  Transmission Date: 20120403
  Serious: Yes (Other)
  Sender: FDA-Public Use
  Company Number: B0755101A

PATIENT
  Age: 47 Year
  Sex: Male

DRUGS (2)
  1. LAMOTRIGINE [Suspect]
     Indication: EPILEPSY
  2. PHENYTOIN [Suspect]
     Indication: EPILEPSY

REACTIONS (5)
  - RENAL FAILURE [None]
  - HEPATIC FAILURE [None]
  - DRUG RASH WITH EOSINOPHILIA AND SYSTEMIC SYMPTOMS [None]
  - HAEMODIALYSIS [None]
  - NEPHRITIS ALLERGIC [None]
